FAERS Safety Report 17809630 (Version 2)
Quarter: 2020Q2

REPORT INFORMATION
  Report Type: Spontaneous
  Country: FR (occurrence: FR)
  Receive Date: 20200520
  Receipt Date: 20200602
  Transmission Date: 20200714
  Serious: Yes (Death)
  Sender: FDA-Public Use
  Company Number: FR-PURDUE PHARMA-GBR-2020-0076757

PATIENT
  Age: 60 Year
  Sex: Female

DRUGS (2)
  1. OXYNORM [Suspect]
     Active Substance: OXYCODONE HYDROCHLORIDE
     Indication: PRODUCT USED FOR UNKNOWN INDICATION
     Dosage: UNK (CONCENTRATION: 50 MG/ML)
     Route: 065
  2. KETAMINE [Concomitant]
     Active Substance: KETAMINE
     Dosage: UNK

REACTIONS (1)
  - Death [Fatal]

NARRATIVE: CASE EVENT DATE: 20200506
